FAERS Safety Report 4526536-0 (Version None)
Quarter: 2004Q4

REPORT INFORMATION
  Report Type: 
  Country: None (occurrence: None)
  Receive Date: 20041210
  Receipt Date: 20041207
  Transmission Date: 20050328
  Serious: Yes (Death, Hospitalization)
  Sender: FDA-Public Use
  Company Number: 2004UW24951

PATIENT
  Age: 57 Year
  Sex: Female
  Weight: 68.4932 kg

DRUGS (9)
  1. IRESSA [Suspect]
     Indication: PANCREATIC CARCINOMA
     Dosage: 250 MG QD PO
     Route: 048
     Dates: start: 20041004, end: 20041130
  2. RADIATION THERAPY [Suspect]
     Indication: PANCREATIC CARCINOMA
     Dates: end: 20041118
  3. PACLITAXEL [Suspect]
     Indication: PANCREATIC CARCINOMA
     Dosage: 6 CYCLES
     Dates: end: 20041115
  4. VICODIN [Concomitant]
  5. GLIPIZIDE [Concomitant]
  6. METFORMIN HCL [Concomitant]
  7. LOVASTATIN [Concomitant]
  8. COMPAZINE [Concomitant]
  9. IMODIUM [Concomitant]

REACTIONS (6)
  - COMA [None]
  - CONFUSIONAL STATE [None]
  - DISORIENTATION [None]
  - FALL [None]
  - MULTI-ORGAN FAILURE [None]
  - SEPSIS [None]
